FAERS Safety Report 6218970-8 (Version None)
Quarter: 2009Q2

REPORT INFORMATION
  Report Type: 
  Country: None (occurrence: None)
  Receive Date: 20090608
  Receipt Date: 20090528
  Transmission Date: 20091009
  Serious: Yes (Other)
  Sender: FDA-Public Use
  Company Number: PHHY2009JP21022

PATIENT
  Sex: Female

DRUGS (3)
  1. SANDOSTATIN LAR [Suspect]
     Indication: VIPOMA
     Dosage: 40 MG, QMO
     Route: 030
     Dates: start: 20081201
  2. SANDOSTATIN [Suspect]
     Indication: VIPOMA
     Dosage: 150 UG DAILY
     Route: 058
     Dates: start: 20081201
  3. SANDOSTATIN [Suspect]
     Dosage: 300 UG DAILY
     Route: 058

REACTIONS (4)
  - DRUG INEFFECTIVE [None]
  - ERYTHEMA [None]
  - HYPOAESTHESIA [None]
  - MALAISE [None]
